FAERS Safety Report 11842750 (Version 3)
Quarter: 2016Q1

REPORT INFORMATION
  Report Type: Spontaneous
  Country: US (occurrence: US)
  Receive Date: 20151216
  Receipt Date: 20160325
  Transmission Date: 20160526
  Serious: Yes (Other)
  Sender: FDA-Public Use
  Company Number: US-ELI_LILLY_AND_COMPANY-US201512001416

PATIENT
  Age: 68 Year
  Sex: Male
  Weight: 95.69 kg

DRUGS (1)
  1. CIALIS [Suspect]
     Active Substance: TADALAFIL
     Indication: ERECTILE DYSFUNCTION
     Dosage: 20 MG, PRN
     Route: 048
     Dates: start: 201506, end: 201510

REACTIONS (9)
  - Nervousness [Unknown]
  - Discomfort [Unknown]
  - Deafness unilateral [Recovered/Resolved]
  - Cranial nerve disorder [Recovering/Resolving]
  - Hypertension [Recovered/Resolved]
  - Wrong technique in product usage process [Unknown]
  - Hyperhidrosis [Unknown]
  - Diplopia [Recovered/Resolved]
  - Deafness neurosensory [Recovering/Resolving]

NARRATIVE: CASE EVENT DATE: 201509
